FAERS Safety Report 14676705 (Version 12)
Quarter: 2018Q3

REPORT INFORMATION
  Report Type: Report from Study
  Country: CA (occurrence: CA)
  Receive Date: 20180324
  Receipt Date: 20180904
  Transmission Date: 20181010
  Serious: Yes (Other)
  Sender: FDA-Public Use
  Company Number: CA-ROCHE-2042899

PATIENT
  Age: 70 Year
  Sex: Male

DRUGS (10)
  1. ASA [Concomitant]
     Active Substance: ASPIRIN
     Route: 048
     Dates: start: 20171026
  2. GLUMETZA [Concomitant]
     Active Substance: METFORMIN HYDROCHLORIDE
     Route: 065
     Dates: start: 20171026
  3. ROSUVASTATIN. [Concomitant]
     Active Substance: ROSUVASTATIN
     Route: 065
     Dates: start: 20171026
  4. SOLU?MEDROL [Concomitant]
     Active Substance: METHYLPREDNISOLONE SODIUM SUCCINATE
     Indication: PREMEDICATION
     Route: 042
  5. AVASTIN [Suspect]
     Active Substance: BEVACIZUMAB
     Indication: GLIOBLASTOMA
     Route: 042
     Dates: start: 20171130
  6. PREGABALIN. [Concomitant]
     Active Substance: PREGABALIN
     Route: 065
     Dates: start: 20171026
  7. BISOPROLOL [Concomitant]
     Active Substance: BISOPROLOL
     Route: 065
     Dates: start: 20171026
  8. AVASTIN [Suspect]
     Active Substance: BEVACIZUMAB
     Indication: BRAIN NEOPLASM MALIGNANT
     Route: 042
     Dates: start: 20171214
  9. IRBESARTAN. [Concomitant]
     Active Substance: IRBESARTAN
     Route: 065
     Dates: start: 20171026
  10. GLUMETZA [Concomitant]
     Active Substance: METFORMIN HYDROCHLORIDE
     Route: 048
     Dates: start: 20171026

REACTIONS (18)
  - Dry skin [Not Recovered/Not Resolved]
  - Infusion related reaction [Recovered/Resolved]
  - Eastern Cooperative Oncology Group performance status worsened [Recovering/Resolving]
  - Hypertension [Recovering/Resolving]
  - Pruritus [Not Recovered/Not Resolved]
  - Proteinuria [Recovered/Resolved]
  - Drug ineffective [Unknown]
  - Oxygen saturation decreased [Unknown]
  - Somnolence [Not Recovered/Not Resolved]
  - Blood pressure systolic increased [Unknown]
  - Diabetes mellitus inadequate control [Unknown]
  - Malaise [Unknown]
  - Peripheral coldness [Unknown]
  - Pruritus [Unknown]
  - Blood pressure increased [Unknown]
  - Fatigue [Unknown]
  - Dyspnoea [Unknown]
  - Heart rate decreased [Unknown]

NARRATIVE: CASE EVENT DATE: 20171214
